FAERS Safety Report 6058600-1 (Version None)
Quarter: 2009Q1

REPORT INFORMATION
  Report Type: 
  Country: None (occurrence: None)
  Receive Date: 20090130
  Receipt Date: 20090116
  Transmission Date: 20090719
  Serious: Yes (Hospitalization)
  Sender: FDA-Public Use
  Company Number: US-CELGENEUS-163-21880-08121080

PATIENT
  Sex: Male

DRUGS (4)
  1. REVLIMID [Suspect]
     Route: 048
     Dates: start: 20080701, end: 20081201
  2. REVLIMID [Suspect]
     Route: 048
     Dates: start: 20090101
  3. THALOMID [Suspect]
     Indication: MULTIPLE MYELOMA
     Route: 048
     Dates: start: 20080801
  4. THALOMID [Suspect]
     Route: 048
     Dates: start: 20070920, end: 20071201

REACTIONS (2)
  - ASTHENIA [None]
  - FAECALOMA [None]
